FAERS Safety Report 7386379-X (Version None)
Quarter: 2011Q1

REPORT INFORMATION
  Report Type: 
  Country: None (occurrence: None)
  Receive Date: 20110331
  Receipt Date: 20110321
  Transmission Date: 20110831
  Serious: Yes (Other)
  Sender: FDA-Public Use
  Company Number: PHHY2010BR72744

PATIENT
  Sex: Female

DRUGS (2)
  1. TRILEPTAL [Suspect]
     Dosage: 300 MG, UNK
  2. HIDANTAL [Suspect]
     Dosage: 100 MG, UNK

REACTIONS (5)
  - EPILEPSY [None]
  - INSOMNIA [None]
  - NERVOUSNESS [None]
  - BRAIN NEOPLASM [None]
  - HYPERTENSION [None]
